FAERS Safety Report 25468881 (Version 1)
Quarter: 2025Q2

REPORT INFORMATION
  Report Type: Spontaneous
  Country: US (occurrence: US)
  Receive Date: 20250623
  Receipt Date: 20250623
  Transmission Date: 20250717
  Serious: Yes (Other)
  Sender: EISAI
  Company Number: US-Eisai-EC-2025-191415

PATIENT
  Age: 15 Year
  Sex: Male

DRUGS (1)
  1. LENVATINIB [Suspect]
     Active Substance: LENVATINIB
     Indication: Osteosarcoma
     Dates: start: 202101, end: 202106

REACTIONS (1)
  - Fistula of small intestine [Recovered/Resolved]

NARRATIVE: CASE EVENT DATE: 20210601
